FAERS Safety Report 18792362 (Version 1)
Quarter: 2021Q1

REPORT INFORMATION
  Report Type: Report from Study
  Country: US (occurrence: US)
  Receive Date: 20210127
  Receipt Date: 20210127
  Transmission Date: 20210419
  Serious: Yes (Other)
  Sender: FDA-Public Use
  Company Number: US-UNITED THERAPEUTICS-UNT-2020-020281

PATIENT
  Age: 34 Year
  Sex: Female
  Weight: 65.76 kg

DRUGS (5)
  1. TREPROSTINIL SODIUM (IV) [Suspect]
     Active Substance: TREPROSTINIL SODIUM
     Dosage: 0.033 ?G/KG, CONTINUING
     Route: 041
  2. OPSUMIT [Concomitant]
     Active Substance: MACITENTAN
     Indication: PRODUCT USED FOR UNKNOWN INDICATION
     Dosage: UNK
     Route: 065
  3. TREPROSTINIL SODIUM (IV) [Suspect]
     Active Substance: TREPROSTINIL SODIUM
     Indication: PULMONARY ARTERIAL HYPERTENSION
     Dosage: UNK, CONTINUING
     Route: 041
     Dates: start: 20201116
  4. SILDENAFIL CITRATE. [Concomitant]
     Active Substance: SILDENAFIL CITRATE
     Indication: PRODUCT USED FOR UNKNOWN INDICATION
     Dosage: UNK
     Route: 065
  5. TREPROSTINIL SODIUM (IV) [Suspect]
     Active Substance: TREPROSTINIL SODIUM
     Dosage: 0.032 ?G/KG, CONTINUING
     Route: 041

REACTIONS (5)
  - Presyncope [Unknown]
  - Blood pressure decreased [Unknown]
  - Product preparation error [Unknown]
  - Accidental overdose [Unknown]
  - Product administration error [Unknown]

NARRATIVE: CASE EVENT DATE: 202012
